FAERS Safety Report 5556334-0 (Version None)
Quarter: 2007Q4

REPORT INFORMATION
  Report Type: 
  Country: None (occurrence: None)
  Receive Date: 20071203
  Receipt Date: 20071121
  Transmission Date: 20080405
  Serious: Yes (Other)
  Sender: FDA-Public Use
  Company Number: CHNY2007DE03862

PATIENT

DRUGS (2)
  1. OTRIVIN [Suspect]
     Dosage: NASAL
     Route: 045
  2. OTRIVIN [Suspect]

REACTIONS (2)
  - INTENTIONAL DRUG MISUSE [None]
  - NASAL DISCOMFORT [None]
